FAERS Safety Report 7462489-3 (Version None)
Quarter: 2011Q2

REPORT INFORMATION
  Report Type: 
  Country: None (occurrence: None)
  Receive Date: 20110506
  Receipt Date: 20110107
  Transmission Date: 20111010
  Serious: Yes (Hospitalization, Other)
  Sender: FDA-Public Use
  Company Number: US-BAYER-201034267NA

PATIENT
  Age: 44 Year
  Sex: Female
  Weight: 63.492 kg

DRUGS (6)
  1. MELATONIN [Concomitant]
  2. YAZ [Suspect]
     Indication: PRODUCT USED FOR UNKNOWN INDICATION
     Route: 048
     Dates: start: 20091001
  3. ASPIRIN [Concomitant]
  4. PLAVIX [Concomitant]
  5. PROTONIX [Concomitant]
  6. ASCORBIC ACID [Concomitant]

REACTIONS (2)
  - ISCHAEMIC CEREBRAL INFARCTION [None]
  - CEREBROVASCULAR ACCIDENT [None]
